FAERS Safety Report 25642148 (Version 1)
Quarter: 2025Q3

REPORT INFORMATION
  Report Type: Spontaneous
  Country: GB (occurrence: GB)
  Receive Date: 20250805
  Receipt Date: 20250805
  Transmission Date: 20251020
  Serious: Yes (Other)
  Sender: ELI LILLY AND COMPANY
  Company Number: GB-MHRA-EMIS-9129-5ce3af29-cc64-4a9f-97c1-32f0e234e782

PATIENT
  Age: 34 Year
  Sex: Female
  Weight: 61 kg

DRUGS (7)
  1. DULOXETINE HYDROCHLORIDE [Suspect]
     Active Substance: DULOXETINE HYDROCHLORIDE
     Indication: Pain
     Dosage: 1 DOSAGE FORM, DAILY
     Route: 065
     Dates: start: 20250326, end: 20250428
  2. DULOXETINE HYDROCHLORIDE [Suspect]
     Active Substance: DULOXETINE HYDROCHLORIDE
     Indication: Depressed mood
  3. DULOXETINE HYDROCHLORIDE [Suspect]
     Active Substance: DULOXETINE HYDROCHLORIDE
     Indication: Poor quality sleep
  4. DULOXETINE HYDROCHLORIDE [Suspect]
     Active Substance: DULOXETINE HYDROCHLORIDE
     Indication: Irritability
  5. DULOXETINE HYDROCHLORIDE [Suspect]
     Active Substance: DULOXETINE HYDROCHLORIDE
     Indication: Mental disorder
  6. ACETAMINOPHEN\CODEINE PHOSPHATE [Concomitant]
     Active Substance: ACETAMINOPHEN\CODEINE PHOSPHATE
     Indication: Product used for unknown indication
     Route: 065
  7. MIRTAZAPINE [Concomitant]
     Active Substance: MIRTAZAPINE
     Indication: Depression
     Dosage: 1 DOSAGE FORM, EACH EVENING
     Route: 065
     Dates: start: 20250206, end: 20250321

REACTIONS (2)
  - Mental disorder [Unknown]
  - Dyssomnia [Recovered/Resolved]

NARRATIVE: CASE EVENT DATE: 20250326
